FAERS Safety Report 4521254-7 (Version None)
Quarter: 2004Q4

REPORT INFORMATION
  Report Type: 
  Country: None (occurrence: None)
  Receive Date: 20041203
  Receipt Date: 20041122
  Transmission Date: 20050328
  Serious: Yes (Hospitalization)
  Sender: FDA-Public Use
  Company Number: 2004CG02345

PATIENT
  Age: 54 Year
  Sex: Female

DRUGS (3)
  1. NEXIUM [Suspect]
     Dosage: 40 MG DAILY PO
     Route: 048
     Dates: start: 20040518, end: 20040810
  2. ENDOXAN [Concomitant]
  3. CORTANCYL [Concomitant]

REACTIONS (3)
  - ALANINE AMINOTRANSFERASE INCREASED [None]
  - ASPARTATE AMINOTRANSFERASE INCREASED [None]
  - GAMMA-GLUTAMYLTRANSFERASE INCREASED [None]
